FAERS Safety Report 10932637 (Version 2)
Quarter: 2015Q2

REPORT INFORMATION
  Report Type: Spontaneous
  Country: US (occurrence: None)
  Receive Date: 20150318
  Receipt Date: 20150402
  Transmission Date: 20150821
  Serious: Yes (Hospitalization, Other)
  Sender: FDA-Public Use
  Company Number: 2782514

PATIENT
  Age: 69 Year
  Sex: Female
  Weight: 99 kg

DRUGS (12)
  1. 2 % LIDOCAINE HYDROCHLORIDE INJECTION, USP, 20 MG/ML, VIALS (LIDOCAINE HYDROCHLORIDE) [Suspect]
     Active Substance: LIDOCAINE HYDROCHLORIDE
     Indication: OSTEOARTHRITIS
     Route: 014
     Dates: start: 20150217
  2. IRBESARTAN. [Concomitant]
     Active Substance: IRBESARTAN
  3. PRAVASTATIN [Concomitant]
     Active Substance: PRAVASTATIN\PRAVASTATIN SODIUM
  4. FISH OIL [Concomitant]
     Active Substance: FISH OIL
  5. BABY ASPIRIN [Concomitant]
     Active Substance: ASPIRIN
  6. CALCIUM W/VITAMIN D [Concomitant]
     Active Substance: CALCIUM\VITAMIN D
  7. LIDOCAINE HYDROCHLORIDE. [Suspect]
     Active Substance: LIDOCAINE HYDROCHLORIDE
     Indication: OSTEOARTHRITIS
     Route: 014
     Dates: start: 20150217
  8. GABAPENTIN. [Concomitant]
     Active Substance: GABAPENTIN
  9. FENOFIBRATE. [Concomitant]
     Active Substance: FENOFIBRATE
  10. OSCAL [Concomitant]
     Active Substance: CALCIUM CARBONATE
  11. DEPO-MEDROL [Suspect]
     Active Substance: METHYLPREDNISOLONE ACETATE
     Indication: OSTEOARTHRITIS
     Dates: start: 20150217
  12. ECHINACEA [Concomitant]
     Active Substance: ECHINACEA, UNSPECIFIED

REACTIONS (7)
  - Malaise [None]
  - Arthritis bacterial [None]
  - Erythema [None]
  - Cellulitis [None]
  - Urticaria [None]
  - Arthritis infective [None]
  - Staphylococcal infection [None]

NARRATIVE: CASE EVENT DATE: 20150217
